FAERS Safety Report 23157323 (Version 2)
Quarter: 2023Q4

REPORT INFORMATION
  Report Type: Spontaneous
  Country: JP (occurrence: JP)
  Receive Date: 20231108
  Receipt Date: 20231110
  Transmission Date: 20240110
  Serious: Yes (Other)
  Sender: FDA-Public Use
  Company Number: JP-002147023-NVSJ2023JP013595

PATIENT
  Age: 0 Year
  Weight: 3.306 kg

DRUGS (13)
  1. ZOLGENSMA [Suspect]
     Active Substance: ONASEMNOGENE ABEPARVOVEC-XIOI
     Indication: Spinal muscular atrophy
     Dosage: 19.3 ML
     Route: 042
     Dates: start: 20230906, end: 20230906
  2. PREDNISOLONE [Concomitant]
     Active Substance: PREDNISOLONE
     Indication: Liver function test increased
     Dosage: 1 MG/KG
     Route: 042
     Dates: start: 20230905, end: 20230907
  3. PREDNISOLONE [Concomitant]
     Active Substance: PREDNISOLONE
     Indication: Troponin I increased
     Dosage: 1 MG/KG
     Route: 048
     Dates: start: 20230908, end: 20230910
  4. PREDNISOLONE [Concomitant]
     Active Substance: PREDNISOLONE
     Dosage: 2 MG/KG
     Route: 048
     Dates: start: 20230911, end: 20230911
  5. PREDNISOLONE [Concomitant]
     Active Substance: PREDNISOLONE
     Dosage: 2 MG/KG
     Route: 042
     Dates: start: 20230912, end: 20230913
  6. PREDNISOLONE [Concomitant]
     Active Substance: PREDNISOLONE
     Dosage: 1.5 MG/KG
     Route: 042
     Dates: start: 20230914, end: 20230914
  7. PREDNISOLONE [Concomitant]
     Active Substance: PREDNISOLONE
     Dosage: 1.5 MG/KG
     Route: 048
     Dates: start: 20230915, end: 20230918
  8. PREDNISOLONE [Concomitant]
     Active Substance: PREDNISOLONE
     Dosage: 1 MG/KG
     Route: 048
     Dates: start: 20230919, end: 20231004
  9. PREDNISOLONE [Concomitant]
     Active Substance: PREDNISOLONE
     Dosage: 0.5 MG/KG
     Route: 048
     Dates: start: 20231005, end: 20231018
  10. PREDNISOLONE [Concomitant]
     Active Substance: PREDNISOLONE
     Dosage: 0.25 MG/KG
     Route: 048
     Dates: start: 20231019, end: 20231102
  11. MENATETRENONE [Concomitant]
     Active Substance: MENATETRENONE
     Indication: Product used for unknown indication
     Dosage: 1 ML
     Route: 065
     Dates: start: 20230908
  12. SIMPLE SYRUP [Concomitant]
     Indication: Product used for unknown indication
     Dosage: 2 ML
     Route: 065
     Dates: start: 20230907
  13. BIFIDOBACTERIUM SPP. [Concomitant]
     Active Substance: BIFIDOBACTERIUM SPP.
     Indication: Product used for unknown indication
     Dosage: 0.3 G
     Route: 065
     Dates: start: 20230914, end: 20230922

REACTIONS (5)
  - Liver function test increased [Recovering/Resolving]
  - Blood potassium increased [Unknown]
  - Pyrexia [Recovered/Resolved]
  - Vomiting [Recovered/Resolved]
  - Troponin I increased [Not Recovered/Not Resolved]

NARRATIVE: CASE EVENT DATE: 20230906
